FAERS Safety Report 20912147 (Version 5)
Quarter: 2022Q3

REPORT INFORMATION
  Report Type: Spontaneous
  Country: GB (occurrence: GB)
  Receive Date: 20220603
  Receipt Date: 20220930
  Transmission Date: 20221026
  Serious: Yes (Other)
  Sender: FDA-Public Use
  Company Number: GB-ROCHE-3077251

PATIENT
  Age: 76 Year
  Sex: Male
  Weight: 89.4 kg

DRUGS (11)
  1. BEVACIZUMAB [Suspect]
     Active Substance: BEVACIZUMAB
     Indication: Hepatocellular carcinoma
     Dosage: 1400 MILLIGRAM
     Route: 065
     Dates: start: 20211105
  2. ATEZOLIZUMAB [Suspect]
     Active Substance: ATEZOLIZUMAB
     Indication: Hepatocellular carcinoma
     Dosage: 1200 MILLIGRAM
     Route: 041
     Dates: start: 20211105
  3. CALCIPOTRIENE [Concomitant]
     Active Substance: CALCIPOTRIENE
     Dosage: UNK UNK, QD
     Route: 065
     Dates: start: 20211012
  4. COAL TAR\COCONUT OIL\SALICYLIC ACID [Concomitant]
     Active Substance: COAL TAR\COCONUT OIL\SALICYLIC ACID
     Dosage: UNK UNK, QD (AS NECESSARY)
     Route: 065
     Dates: start: 20211012
  5. FOLIC ACID [Concomitant]
     Active Substance: FOLIC ACID
     Dosage: UNK UNK, QD
     Route: 065
     Dates: start: 20211012
  6. CHOLECALCIFEROL [Concomitant]
     Active Substance: CHOLECALCIFEROL
     Dosage: UNK, AS NECESSARY
     Route: 065
     Dates: start: 20211012
  7. PENICILLIN V [Concomitant]
     Active Substance: PENICILLIN V
     Dosage: UNK UNK, BID
     Route: 065
     Dates: start: 20211012
  8. RAMIPRIL [Concomitant]
     Active Substance: RAMIPRIL
     Dosage: UNK UNK, QD
     Route: 065
     Dates: start: 20210508
  9. TAMSULOSIN [Concomitant]
     Active Substance: TAMSULOSIN
     Dosage: UNK UNK, QD
     Route: 065
     Dates: start: 20211012
  10. CHLOROCRESOL [Concomitant]
     Active Substance: CHLOROCRESOL
     Dosage: UNK, Q 3 DAYS
     Dates: start: 20220105
  11. ATEZOLIZUMAB [Concomitant]
     Active Substance: ATEZOLIZUMAB
     Dosage: 1200 MILLIGRAM
     Route: 065

REACTIONS (4)
  - Hypothyroidism [Recovering/Resolving]
  - Proteinuria [Not Recovered/Not Resolved]
  - COVID-19 [Recovered/Resolved]
  - Dry skin [Not Recovered/Not Resolved]

NARRATIVE: CASE EVENT DATE: 20220406
